FAERS Safety Report 10475455 (Version 1)
Quarter: 2014Q3

REPORT INFORMATION
  Report Type: Spontaneous
  Country: US (occurrence: None)
  Receive Date: 20140924
  Receipt Date: 20140924
  Transmission Date: 20150326
  Serious: Yes (Life-Threatening, Hospitalization, Other)
  Sender: FDA-Public Use
  Company Number: None

PATIENT
  Age: 18 Year
  Sex: Female
  Weight: 53.52 kg

DRUGS (5)
  1. BUPROPION [Suspect]
     Active Substance: BUPROPION
     Indication: ATTENTION DEFICIT/HYPERACTIVITY DISORDER
     Dosage: 150 MG TAB, ONE TABLET 2XDAILY MOUTH
     Route: 048
     Dates: start: 20140703, end: 20140825
  2. ADVIL [Concomitant]
     Active Substance: IBUPROFEN
  3. LORAZEPAM. [Concomitant]
     Active Substance: LORAZEPAM
  4. XANAX [Concomitant]
     Active Substance: ALPRAZOLAM
  5. BUPROPION [Suspect]
     Active Substance: BUPROPION
     Indication: ANXIETY
     Dosage: 150 MG TAB, ONE TABLET 2XDAILY MOUTH
     Route: 048
     Dates: start: 20140703, end: 20140825

REACTIONS (4)
  - Convulsion [None]
  - Head injury [None]
  - Fall [None]
  - Back pain [None]

NARRATIVE: CASE EVENT DATE: 20140825
